FAERS Safety Report 4970422-9 (Version None)
Quarter: 2006Q2

REPORT INFORMATION
  Report Type: 
  Country: None (occurrence: None)
  Receive Date: 20060406
  Receipt Date: 20060330
  Transmission Date: 20061013
  Serious: Yes (Other)
  Sender: FDA-Public Use
  Company Number: 2006043851

PATIENT
  Age: 52 Year
  Sex: Female
  Weight: 60.3284 kg

DRUGS (3)
  1. DEPO-MEDROL [Suspect]
     Indication: SINUSITIS
     Dosage: (80 MG),
     Dates: start: 20060328
  2. ESTROGENS (ESTROGENS) [Concomitant]
  3. SYNTHROID [Concomitant]

REACTIONS (8)
  - ANXIETY [None]
  - DIZZINESS [None]
  - FEELING HOT [None]
  - FLUSHING [None]
  - HEART RATE INCREASED [None]
  - HYPERTENSION [None]
  - INSOMNIA [None]
  - PALPITATIONS [None]
